FAERS Safety Report 5295867-1 (Version None)
Quarter: 2007Q2

REPORT INFORMATION
  Report Type: 
  Country: None (occurrence: None)
  Receive Date: 20070413
  Receipt Date: 20070329
  Transmission Date: 20071010
  Serious: Yes (Other)
  Sender: FDA-Public Use
  Company Number: US-JNJFOC-20070106747

PATIENT
  Sex: Female

DRUGS (7)
  1. REMICADE [Suspect]
     Dosage: TREATMENT NUMBER 7
     Route: 042
  2. REMICADE [Suspect]
     Indication: RHEUMATOID ARTHRITIS
     Dosage: 3 VIALS
     Route: 042
  3. REMICADE [Suspect]
     Indication: COLITIS ULCERATIVE
     Route: 042
  4. ASACOL [Concomitant]
     Indication: COLITIS ULCERATIVE
  5. IMURAN [Concomitant]
     Indication: COLITIS ULCERATIVE
  6. NORVASC [Concomitant]
     Indication: HYPERTENSION
  7. HRT [Concomitant]

REACTIONS (1)
  - RHEUMATOID ARTHRITIS [None]
